FAERS Safety Report 15315675 (Version 3)
Quarter: 2018Q4

REPORT INFORMATION
  Report Type: Spontaneous
  Country: IT (occurrence: IT)
  Receive Date: 20180824
  Receipt Date: 20181108
  Transmission Date: 20190204
  Serious: Yes (Hospitalization, Other)
  Sender: FDA-Public Use
  Company Number: IT-ASTRAZENECA-2018SF06519

PATIENT
  Age: 78 Year
  Sex: Male

DRUGS (10)
  1. PRADAXA [Concomitant]
     Active Substance: DABIGATRAN ETEXILATE MESYLATE
     Dosage: 220MG
     Route: 048
  2. METFORMIN HYDROCHLORIDE. [Suspect]
     Active Substance: METFORMIN HYDROCHLORIDE
     Indication: PRODUCT USED FOR UNKNOWN INDICATION
     Dosage: NON AZ DRUG
     Route: 065
  3. LUVION [Concomitant]
     Dosage: 50.0MG UNKNOWN
     Route: 048
  4. ESOMEPRAZOLE. [Suspect]
     Active Substance: ESOMEPRAZOLE MAGNESIUM
     Indication: PRODUCT USED FOR UNKNOWN INDICATION
     Route: 048
  5. OLMESARTAN MEDOXOMIL. [Suspect]
     Active Substance: OLMESARTAN MEDOXOMIL
     Indication: PRODUCT USED FOR UNKNOWN INDICATION
     Route: 065
  6. SEQUACOR [Concomitant]
     Active Substance: BISOPROLOL
     Dosage: 10.0MG UNKNOWN
     Route: 048
  7. LUCEN [Concomitant]
     Active Substance: ESOMEPRAZOLE
     Dosage: 220MG
     Route: 048
  8. LASIX [Concomitant]
     Active Substance: FUROSEMIDE
     Dosage: 25.0MG UNKNOWN
     Route: 048
  9. TRIATEC (RAMIPRIL) [Suspect]
     Active Substance: RAMIPRIL
     Indication: PRODUCT USED FOR UNKNOWN INDICATION
     Dosage: 80.0MG UNKNOWN
     Route: 048
  10. LESCOL [Concomitant]
     Active Substance: FLUVASTATIN SODIUM
     Dosage: 40.0MG UNKNOWN
     Route: 048

REACTIONS (4)
  - Hypomagnesaemia [Recovered/Resolved]
  - Electrolyte imbalance [Recovered/Resolved]
  - Hypocalcaemia [Recovered/Resolved]
  - Cardiac failure [Recovered/Resolved]

NARRATIVE: CASE EVENT DATE: 20171013
